FAERS Safety Report 7871165-4 (Version None)
Quarter: 2011Q4

REPORT INFORMATION
  Report Type: 
  Country: None (occurrence: None)
  Receive Date: 20111029
  Receipt Date: 20110225
  Transmission Date: 20120403
  Serious: No
  Sender: FDA-Public Use
  Company Number: US-AMGEN-USASP2011010919

PATIENT
  Sex: Female

DRUGS (1)
  1. ENBREL [Suspect]
     Indication: RHEUMATOID ARTHRITIS
     Dosage: 50 MG QWK
     Dates: start: 20070618

REACTIONS (7)
  - MALAISE [None]
  - COORDINATION ABNORMAL [None]
  - WEIGHT FLUCTUATION [None]
  - WHITE BLOOD CELL DISORDER [None]
  - PAIN [None]
  - CONTUSION [None]
  - FATIGUE [None]
